FAERS Safety Report 11114797 (Version 2)
Quarter: 2015Q4

REPORT INFORMATION
  Report Type: Spontaneous
  Country: US (occurrence: US)
  Receive Date: 20150515
  Receipt Date: 20151223
  Transmission Date: 20160304
  Serious: Yes (Other)
  Sender: FDA-Public Use
  Company Number: US-ELI_LILLY_AND_COMPANY-US201505003422

PATIENT
  Sex: Female

DRUGS (1)
  1. CYMBALTA [Suspect]
     Active Substance: DULOXETINE HYDROCHLORIDE
     Indication: FIBROMYALGIA
     Dosage: 1 DF, UNKNOWN
     Dates: start: 200705, end: 201405

REACTIONS (14)
  - Mood swings [Unknown]
  - Depression [Unknown]
  - Sleep disorder [Unknown]
  - Insomnia [Unknown]
  - Nightmare [Unknown]
  - Paraesthesia [Unknown]
  - Drug withdrawal syndrome [Unknown]
  - Suicidal ideation [Unknown]
  - Irritability [Unknown]
  - Dizziness [Unknown]
  - Nausea [Unknown]
  - Vertigo [Unknown]
  - Aggression [Unknown]
  - Agitation [Unknown]
